FAERS Safety Report 11158082 (Version 1)
Quarter: 2015Q2

REPORT INFORMATION
  Report Type: Spontaneous
  Country: BE (occurrence: None)
  Receive Date: 20150601
  Receipt Date: 20150601
  Transmission Date: 20150821
  Serious: Yes (Hospitalization)
  Sender: FDA-Public Use
  Company Number: 2015FE01744

PATIENT
  Sex: Female
  Weight: 45.9 kg

DRUGS (2)
  1. ZOMACTON [Suspect]
     Active Substance: SOMATROPIN
     Indication: GROWTH RETARDATION
     Dosage: 0.001 MG/KG, DAILY
     Dates: start: 20090513, end: 20130508
  2. TRIPTORELIN ACETATE [Suspect]
     Active Substance: TRIPTORELIN ACETATE
     Indication: GROWTH RETARDATION
     Dosage: 3.75 MG, MONTHLY
     Dates: start: 20090513, end: 20130508

REACTIONS (1)
  - Depression [None]

NARRATIVE: CASE EVENT DATE: 20150413
